FAERS Safety Report 11421406 (Version 1)
Quarter: 2015Q3

REPORT INFORMATION
  Report Type: Spontaneous
  Country: US (occurrence: US)
  Receive Date: 20150826
  Receipt Date: 20150826
  Transmission Date: 20151125
  Serious: No
  Sender: FDA-Public Use
  Company Number: GXBR2015US001777

PATIENT
  Age: 33 Year
  Sex: Female
  Weight: 49.43 kg

DRUGS (1)
  1. AMOXICILLIN CAPSULES, USP [Suspect]
     Active Substance: AMOXICILLIN
     Indication: SINUSITIS
     Dosage: 500 MG, BID2SDO
     Route: 048
     Dates: start: 20150702, end: 20150706

REACTIONS (3)
  - Urticaria [Recovered/Resolved]
  - Neutrophilia [Unknown]
  - Pruritus [Recovered/Resolved]

NARRATIVE: CASE EVENT DATE: 20150706
